FAERS Safety Report 10778868 (Version 1)
Quarter: 2015Q1

REPORT INFORMATION
  Report Type: Spontaneous
  Country: US (occurrence: US)
  Receive Date: 20150210
  Receipt Date: 20150210
  Transmission Date: 20150721
  Serious: No
  Sender: FDA-Public Use
  Company Number: US-TEVA-531645USA

PATIENT
  Sex: Female

DRUGS (1)
  1. MONTELUKAST [Suspect]
     Active Substance: MONTELUKAST SODIUM
     Route: 065
     Dates: start: 201209

REACTIONS (6)
  - Aggression [Unknown]
  - Fear [Unknown]
  - Anger [Unknown]
  - Depression [Unknown]
  - Paranoia [Unknown]
  - Product substitution issue [Unknown]
